FAERS Safety Report 6243751-9 (Version None)
Quarter: 2009Q2

REPORT INFORMATION
  Report Type: 
  Country: None (occurrence: None)
  Receive Date: 20090618
  Receipt Date: 20081203
  Transmission Date: 20091009
  Serious: Yes (Hospitalization, Other)
  Sender: FDA-Public Use
  Company Number: CIP07001815

PATIENT
  Age: 63 Year
  Sex: Female
  Weight: 61.2 kg

DRUGS (11)
  1. ACTONEL [Suspect]
     Dosage: 35 MG ONCE WEEKLY, ORAL
     Route: 048
     Dates: start: 20050125
  2. FOSAMAX [Suspect]
     Indication: OSTEOPOROSIS
     Dosage: 70 MG ONCE WEEKLY, ORAL ; 70 MG ONCE WEEKLY, ORAL
     Route: 048
     Dates: start: 20030101, end: 20040401
  3. FOSAMAX [Suspect]
     Indication: OSTEOPOROSIS
     Dosage: 70 MG ONCE WEEKLY, ORAL ; 70 MG ONCE WEEKLY, ORAL
     Route: 048
     Dates: start: 20040730, end: 20050124
  4. LIPITOR [Concomitant]
  5. FLUOXETINE [Concomitant]
  6. COZAAR [Concomitant]
  7. GLYBURIDE [Concomitant]
  8. SINEMET [Concomitant]
  9. ACETAMINOPHEN AND HYDROCODONE BITARTRATE [Concomitant]
  10. PRILOSEC /00661021/ (OMEPRAZOLE) [Concomitant]
  11. METFORMIN HCL [Concomitant]

REACTIONS (16)
  - ARTHRALGIA [None]
  - FALL [None]
  - FRACTURE NONUNION [None]
  - HYPOAESTHESIA ORAL [None]
  - JAW DISORDER [None]
  - JOINT RANGE OF MOTION DECREASED [None]
  - ORAL INFECTION [None]
  - ORAL PAIN [None]
  - OSTEOMYELITIS [None]
  - OSTEONECROSIS [None]
  - PRIMARY SEQUESTRUM [None]
  - PURULENT DISCHARGE [None]
  - RADIUS FRACTURE [None]
  - SWELLING FACE [None]
  - TOOTH ABSCESS [None]
  - TOOTH EXTRACTION [None]
